FAERS Safety Report 7606884-8 (Version None)
Quarter: 2011Q3

REPORT INFORMATION
  Report Type: 
  Country: None (occurrence: None)
  Receive Date: 20110713
  Receipt Date: 20110704
  Transmission Date: 20111222
  Serious: Yes (Hospitalization)
  Sender: FDA-Public Use
  Company Number: DK-GLAXOSMITHKLINE-B0732310A

PATIENT
  Sex: Female
  Weight: 70 kg

DRUGS (2)
  1. CLINDOXYL [Suspect]
     Indication: ACNE
     Route: 065
     Dates: start: 20110622, end: 20110624
  2. GLUCOSAMINE [Concomitant]
     Indication: ARTHRALGIA
     Dates: start: 20070110

REACTIONS (3)
  - ERYTHEMA [None]
  - ECZEMA [None]
  - SWELLING FACE [None]
